FAERS Safety Report 10897153 (Version 1)
Quarter: 2015Q1

REPORT INFORMATION
  Report Type: Spontaneous
  Country: US (occurrence: None)
  Receive Date: 20150302
  Receipt Date: 20150302
  Transmission Date: 20150721
  Serious: No
  Sender: FDA-Public Use
  Company Number: None

PATIENT
  Age: 62 Year
  Sex: Male

DRUGS (5)
  1. LANTUS SOLOSTAR [Suspect]
     Active Substance: INSULIN GLARGINE
     Indication: BLOOD GLUCOSE ABNORMAL
     Dosage: 16 UNITS  QD INTRAVENOUS
     Route: 042
     Dates: start: 20150209, end: 20150222
  2. HUMALOG KWIKPEN [Concomitant]
     Active Substance: INSULIN LISPRO
  3. FLUTICASONE [Concomitant]
     Active Substance: FLUTICASONE\FLUTICASONE PROPIONATE
  4. DULOXETINE [Concomitant]
     Active Substance: DULOXETINE
  5. CRESTOR [Concomitant]
     Active Substance: ROSUVASTATIN CALCIUM

REACTIONS (2)
  - Blood glucose abnormal [None]
  - Product quality issue [None]

NARRATIVE: CASE EVENT DATE: 20150222
